FAERS Safety Report 4291417-7 (Version None)
Quarter: 2004Q1

REPORT INFORMATION
  Report Type: 
  Country: None (occurrence: None)
  Receive Date: 20040211
  Receipt Date: 20040203
  Transmission Date: 20041129
  Serious: Yes (Other)
  Sender: FDA-Public Use
  Company Number: PHNU2004DE00776

PATIENT
  Sex: Male

DRUGS (2)
  1. CLOZARIL [Suspect]
     Dosage: 75 MG/DAY
     Route: 048
  2. MARCUMAR [Concomitant]
     Indication: AORTIC VALVE REPLACEMENT

REACTIONS (1)
  - RETINAL VEIN THROMBOSIS [None]
